FAERS Safety Report 21228724 (Version 2)
Quarter: 2022Q3

REPORT INFORMATION
  Report Type: Report from Study
  Country: IL (occurrence: None)
  Receive Date: 20220818
  Receipt Date: 20220825
  Transmission Date: 20221027
  Serious: Yes (Hospitalization)
  Sender: FDA-Public Use
  Company Number: IL-ROCHE-3161613

PATIENT
  Age: 87 Year
  Sex: Male
  Weight: 67 kg

DRUGS (3)
  1. OBINUTUZUMAB [Suspect]
     Active Substance: OBINUTUZUMAB
     Indication: Richter^s syndrome
     Dosage: CYCLES 1: DAY 1: OBINUTUZUMAB 100 MG DAY 1 (OR 2): OBINUTUZUMAB 900 MG DAY 8: OBINUTUZUMAB 1000 MG
     Route: 042
     Dates: start: 20220718
  2. VENETOCLAX [Suspect]
     Active Substance: VENETOCLAX
     Indication: Richter^s syndrome
     Dosage: LAST DOSE : 09/AUG/2022
     Route: 048
     Dates: start: 20220809
  3. IBRUTINIB [Suspect]
     Active Substance: IBRUTINIB
     Indication: Richter^s syndrome
     Dosage: LAST FULL DOSE ADMINISTERED 10/AUG/2022, REDUCED DOSE FROM 11/AUG/2022
     Route: 048
     Dates: start: 20220718

REACTIONS (1)
  - COVID-19 [Unknown]

NARRATIVE: CASE EVENT DATE: 20220809
